FAERS Safety Report 9440826 (Version 1)
Quarter: 2013Q3

REPORT INFORMATION
  Report Type: Spontaneous
  Country: US (occurrence: US)
  Receive Date: 20130805
  Receipt Date: 20130805
  Transmission Date: 20140515
  Serious: Yes (Hospitalization, Other)
  Sender: FDA-Public Use
  Company Number: ALCN2013US000832

PATIENT
  Sex: Female

DRUGS (2)
  1. AZOPT [Suspect]
     Route: 047
  2. LATANOPROST [Concomitant]

REACTIONS (3)
  - Atrial fibrillation [Unknown]
  - Hypertension [Unknown]
  - Diarrhoea [Unknown]
